FAERS Safety Report 24134243 (Version 1)
Quarter: 2024Q3

REPORT INFORMATION
  Report Type: Report from Study
  Country: GR (occurrence: GR)
  Receive Date: 20240724
  Receipt Date: 20240724
  Transmission Date: 20241016
  Serious: Yes (Hospitalization)
  Sender: ABBVIE
  Company Number: GR-ABBVIE-5849305

PATIENT
  Sex: Male
  Weight: 85 kg

DRUGS (3)
  1. CARBIDOPA\LEVODOPA [Suspect]
     Active Substance: CARBIDOPA\LEVODOPA
     Indication: Parkinson^s disease
     Dosage: MORNING DOSE: 12.0ML; CONTINUOUS RATE: 3.9ML/H; EXTRA DOSE: 3.0ML
     Route: 050
  2. CARBIDOPA\LEVODOPA [Suspect]
     Active Substance: CARBIDOPA\LEVODOPA
     Dosage: MORNING DOSE: 15.0ML; CONTINUOUS RATE: 4.8ML/H; EXTRA DOSE: 3.0ML
     Route: 050
     Dates: start: 20220201
  3. LYRICA [Suspect]
     Active Substance: PREGABALIN
     Indication: Neuropsychological symptoms
     Dosage: TIME INTERVAL: 0.14285714 DAYS
     Route: 048
     Dates: end: 20240714

REACTIONS (8)
  - Discomfort [Recovered/Resolved]
  - Weight decreased [Not Recovered/Not Resolved]
  - Hallucination, visual [Not Recovered/Not Resolved]
  - Gait disturbance [Not Recovered/Not Resolved]
  - Balance disorder [Unknown]
  - Intentional product misuse [Unknown]
  - Hyperkinesia [Recovered/Resolved]
  - Neuropsychological symptoms [Not Recovered/Not Resolved]

NARRATIVE: CASE EVENT DATE: 20230101
